FAERS Safety Report 7403369-9 (Version None)
Quarter: 2011Q2

REPORT INFORMATION
  Report Type: 
  Country: None (occurrence: None)
  Receive Date: 20110408
  Receipt Date: 20110401
  Transmission Date: 20111010
  Serious: Yes (Hospitalization)
  Sender: FDA-Public Use
  Company Number: A0897009A

PATIENT
  Age: 55 Year
  Sex: Male
  Weight: 103.2 kg

DRUGS (8)
  1. METFORMIN [Concomitant]
  2. CRESTOR [Concomitant]
  3. ZIAC [Concomitant]
  4. ASPIRIN [Concomitant]
  5. AVANDIA [Suspect]
     Dosage: 4MG PER DAY
     Route: 048
     Dates: end: 20070604
  6. AVAPRO [Concomitant]
  7. AMARYL [Concomitant]
  8. LANTUS [Concomitant]

REACTIONS (4)
  - ARRHYTHMIA [None]
  - HYPERTENSION [None]
  - HYPERLIPIDAEMIA [None]
  - CHEST PAIN [None]
